FAERS Safety Report 5919241-7 (Version None)
Quarter: 2008Q4

REPORT INFORMATION
  Report Type: 
  Country: None (occurrence: None)
  Receive Date: 20081014
  Receipt Date: 20081014
  Transmission Date: 20090506
  Serious: No
  Sender: FDA-Public Use
  Company Number: None

PATIENT
  Age: 62 Year
  Sex: Female
  Weight: 56.6996 kg

DRUGS (1)
  1. MAXALT-MLT [Suspect]
     Indication: MIGRAINE
     Dosage: THREE MONTHS NOW OFF AND ON
     Dates: start: 20080820, end: 20081010

REACTIONS (1)
  - ALOPECIA [None]
